FAERS Safety Report 5276879-0 (Version None)
Quarter: 2007Q1

REPORT INFORMATION
  Report Type: 
  Country: None (occurrence: None)
  Receive Date: 20070327
  Receipt Date: 20070314
  Transmission Date: 20070707
  Serious: Yes (Hospitalization)
  Sender: FDA-Public Use
  Company Number: CO-AVENTIS-200615149EU

PATIENT
  Age: 67 Year
  Sex: Female

DRUGS (6)
  1. ENOXAPARIN SODIUM [Suspect]
     Route: 058
     Dates: start: 20060918, end: 20060927
  2. ACETAMINOPHEN [Concomitant]
  3. METOPROLOL SUCCINATE [Concomitant]
     Route: 048
     Dates: end: 20060925
  4. METOCLOPRAMIDE [Concomitant]
  5. OMEPRAZOLE [Concomitant]
  6. TRAZODONE HCL [Concomitant]

REACTIONS (1)
  - OLIGURIA [None]
